FAERS Safety Report 4301889-7 (Version None)
Quarter: 2004Q1

REPORT INFORMATION
  Report Type: 
  Country: None (occurrence: None)
  Receive Date: 20040218
  Receipt Date: 20031209
  Transmission Date: 20041129
  Serious: Yes (Other)
  Sender: FDA-Public Use
  Company Number: 200320368US

PATIENT
  Age: 58 Year
  Sex: Female
  Weight: 57.2 kg

DRUGS (10)
  1. LANTUS [Suspect]
     Indication: DIABETES MELLITUS INSULIN-DEPENDENT
     Dosage: 16 U HS INJ
  2. LANTUS [Suspect]
     Indication: DIABETES MELLITUS INSULIN-DEPENDENT
     Dosage: 17 U HS INJ
  3. NOVOLOG [Concomitant]
  4. SYNTHROID [Concomitant]
  5. PANTOPRAZOLE SODIUM [Concomitant]
  6. FLUVASTATIN SODIUM [Concomitant]
  7. PROCHLORPERAZINE EDISYLATE (COMPAZINE) [Concomitant]
  8. FLUTICASONE PROPIONATE (FLONASE) [Concomitant]
  9. MAGNESIUM [Concomitant]
  10. CALCIUM [Concomitant]

REACTIONS (3)
  - BLOOD GLUCOSE INCREASED [None]
  - FEELING ABNORMAL [None]
  - HYPOGLYCAEMIA [None]
